FAERS Safety Report 6265758-8 (Version None)
Quarter: 2009Q3

REPORT INFORMATION
  Report Type: 
  Country: None (occurrence: None)
  Receive Date: 20090713
  Receipt Date: 20090701
  Transmission Date: 20100115
  Serious: Yes (Disabling)
  Sender: FDA-Public Use
  Company Number: US-WYE-H10012809

PATIENT
  Sex: Male

DRUGS (2)
  1. RAPAMUNE [Suspect]
     Indication: PROPHYLAXIS AGAINST TRANSPLANT REJECTION
     Dosage: UNSPECIFIED
     Route: 048
  2. FLUCONAZOLE [Concomitant]
     Indication: PROPHYLAXIS

REACTIONS (3)
  - BLISTER [None]
  - RASH [None]
  - STEVENS-JOHNSON SYNDROME [None]
